FAERS Safety Report 13549816 (Version 1)
Quarter: 2017Q2

REPORT INFORMATION
  Report Type: Spontaneous
  Country: US (occurrence: US)
  Receive Date: 20170516
  Receipt Date: 20170516
  Transmission Date: 20170830
  Serious: Yes (Hospitalization)
  Sender: FDA-Public Use
  Company Number: US-ELI_LILLY_AND_COMPANY-US201705001674

PATIENT
  Age: 53 Year
  Sex: Male

DRUGS (5)
  1. CELEXA [Concomitant]
     Active Substance: CITALOPRAM HYDROBROMIDE
     Route: 065
  2. TALTZ [Suspect]
     Active Substance: IXEKIZUMAB
     Indication: PSORIASIS
     Dosage: 80 MG, UNK
     Route: 058
     Dates: start: 20170120, end: 20170220
  3. KEPPRA [Concomitant]
     Active Substance: LEVETIRACETAM
     Route: 065
  4. CLARITIN [Concomitant]
     Active Substance: LORATADINE
     Route: 065
  5. ELIQUIS [Concomitant]
     Active Substance: APIXABAN
     Route: 065

REACTIONS (4)
  - Gait disturbance [Unknown]
  - Hepatic enzyme increased [Unknown]
  - Seizure [Recovering/Resolving]
  - Blood magnesium decreased [Unknown]

NARRATIVE: CASE EVENT DATE: 20170220
